FAERS Safety Report 5352125-4 (Version None)
Quarter: 2007Q2

REPORT INFORMATION
  Report Type: 
  Country: None (occurrence: None)
  Receive Date: 20070606
  Receipt Date: 20070522
  Transmission Date: 20071010
  Serious: Yes (Hospitalization)
  Sender: FDA-Public Use
  Company Number: 2007S1004647

PATIENT
  Age: 2 Year
  Sex: Female

DRUGS (2)
  1. MERCAPTAMINE BITARTRATE (MERCAPTAMINE BITARTRATE) [Suspect]
     Indication: CYSTINOSIS
     Dosage: 13.7 MG/KG; 4 TIMES A DAY; ORAL
     Route: 048
     Dates: start: 20000801
  2. ADCO-INDOMETHACIN [Concomitant]

REACTIONS (4)
  - DEHYDRATION [None]
  - DIARRHOEA [None]
  - PYELONEPHRITIS [None]
  - RECTAL HAEMORRHAGE [None]
